FAERS Safety Report 10044659 (Version 3)
Quarter: 2016Q1

REPORT INFORMATION
  Report Type: Report from Study
  Country: DE (occurrence: CL)
  Receive Date: 20140328
  Receipt Date: 20160311
  Transmission Date: 20160525
  Serious: Yes (Other)
  Sender: FDA-Public Use
  Company Number: DE-ACTELION-A-NJ2014-96716

PATIENT
  Age: 45 Year
  Sex: Female

DRUGS (8)
  1. FUROSEMIDA [Concomitant]
     Active Substance: FUROSEMIDE
  2. CHLORPHENAMINE [Concomitant]
     Active Substance: CHLORPHENIRAMINE MALEATE
  3. DILTIAZEM [Concomitant]
     Active Substance: DILTIAZEM
  4. NEBILET [Concomitant]
     Active Substance: NEBIVOLOL
  5. L ARGININ HCL [Concomitant]
  6. NEO-SINTROM [Interacting]
     Active Substance: ACENOCOUMAROL
     Indication: PRODUCT USED FOR UNKNOWN INDICATION
     Dosage: UNK
     Route: 048
  7. VENTAVIS [Suspect]
     Active Substance: ILOPROST
     Indication: PRODUCT USED FOR UNKNOWN INDICATION
     Dosage: UNK
     Route: 055
     Dates: start: 201311
  8. SILDENAFIL. [Concomitant]
     Active Substance: SILDENAFIL

REACTIONS (8)
  - Haematochezia [Recovered/Resolved]
  - Haematemesis [Recovering/Resolving]
  - Haematochezia [Recovered/Resolved]
  - Drug interaction [Recovering/Resolving]
  - International normalised ratio increased [Unknown]
  - Diarrhoea [Recovering/Resolving]
  - Rotavirus infection [Recovering/Resolving]
  - Feeling abnormal [Recovering/Resolving]

NARRATIVE: CASE EVENT DATE: 20140312
